FAERS Safety Report 12804459 (Version 2)
Quarter: 2016Q4

REPORT INFORMATION
  Report Type: Report from Study
  Country: CA (occurrence: CA)
  Receive Date: 20161003
  Receipt Date: 20161116
  Transmission Date: 20170207
  Serious: Yes (Hospitalization)
  Sender: FDA-Public Use
  Company Number: CA-JNJFOC-20160929844

PATIENT
  Age: 32 Year
  Sex: Male
  Weight: 84 kg

DRUGS (3)
  1. REMICADE [Suspect]
     Active Substance: INFLIXIMAB
     Indication: CROHN^S DISEASE
     Dosage: INFUSION NUMBER 42
     Route: 042
     Dates: start: 20160927
  2. REMICADE [Suspect]
     Active Substance: INFLIXIMAB
     Indication: CROHN^S DISEASE
     Dosage: EVERY 6-8 WEEKS
     Route: 042
     Dates: start: 20110926
  3. REMICADE [Suspect]
     Active Substance: INFLIXIMAB
     Indication: CROHN^S DISEASE
     Route: 042
     Dates: start: 20161108

REACTIONS (6)
  - Adhesion [Recovered/Resolved]
  - Impaired healing [Unknown]
  - Off label use [Unknown]
  - Product use issue [Unknown]
  - Diarrhoea [Recovered/Resolved]
  - Abdominal pain [Not Recovered/Not Resolved]

NARRATIVE: CASE EVENT DATE: 20110926
